FAERS Safety Report 9106239 (Version 4)
Quarter: 2013Q4

REPORT INFORMATION
  Report Type: Spontaneous
  Country: IE (occurrence: IE)
  Receive Date: 20130221
  Receipt Date: 20131212
  Transmission Date: 20140711
  Serious: Yes (Hospitalization, Other)
  Sender: FDA-Public Use
  Company Number: PHFR2013IE001288

PATIENT
  Age: 43 Year
  Sex: Male

DRUGS (9)
  1. CLOZARIL [Suspect]
     Indication: SCHIZOPHRENIA
     Dosage: 150 MG, DAILY
     Route: 048
     Dates: start: 20120821
  2. CLOZARIL [Suspect]
     Dosage: 300 MG, UNK
     Dates: start: 20130205
  3. FLUOXETINE [Concomitant]
     Indication: ANXIETY
     Dosage: 40 MG,DAILY
     Route: 048
     Dates: start: 201301
  4. ATENOLOL [Concomitant]
     Indication: TACHYCARDIA
     Dosage: 50 MG,DAILY
     Route: 048
     Dates: start: 20120830
  5. ATENOLOL [Concomitant]
     Indication: ANXIETY
  6. FOLIC ACID [Concomitant]
     Dosage: 5 MG, QD
     Route: 048
  7. OMNEXEL [Concomitant]
     Indication: URINARY INCONTINENCE
     Dosage: 400 UG,DAILY
     Route: 048
     Dates: start: 2011
  8. HALOPERIDOL [Concomitant]
     Dosage: UNK
     Dates: start: 2012
  9. SULPRIDE [Concomitant]
     Dosage: UNK

REACTIONS (6)
  - Urinary tract infection [Recovered/Resolved]
  - Restlessness [Recovered/Resolved]
  - Malaise [Recovered/Resolved]
  - Convulsion [Recovered/Resolved]
  - White blood cell count increased [Recovered/Resolved]
  - Neutrophil count increased [Recovered/Resolved]
